FAERS Safety Report 5674055-0 (Version None)
Quarter: 2008Q1

REPORT INFORMATION
  Report Type: 
  Country: None (occurrence: None)
  Receive Date: 20080317
  Receipt Date: 20080305
  Transmission Date: 20080703
  Serious: Yes (Other)
  Sender: FDA-Public Use
  Company Number: A-CH2008-19214

PATIENT
  Age: 51 Year
  Sex: Female
  Weight: 67 kg

DRUGS (4)
  1. TRACLEER [Suspect]
     Indication: PULMONARY HYPERTENSION
     Dosage: ORAL
     Route: 048
     Dates: start: 20051002
  2. MIRACUMAR (PHENPROCOUMON) [Concomitant]
  3. SILDENAFIL CITRATE [Concomitant]
  4. OXYGEN (OXYGEN) [Concomitant]

REACTIONS (2)
  - HAEMOGLOBIN DECREASED [None]
  - WHITE BLOOD CELL COUNT DECREASED [None]
